FAERS Safety Report 19357178 (Version 4)
Quarter: 2021Q4

REPORT INFORMATION
  Report Type: Spontaneous
  Country: US (occurrence: US)
  Receive Date: 20210601
  Receipt Date: 20211228
  Transmission Date: 20220303
  Serious: No
  Sender: FDA-Public Use
  Company Number: US-GLAXOSMITHKLINE-USCH2021032023

PATIENT
  Sex: Male

DRUGS (3)
  1. VOLTAREN ARTHRITIS PAIN [Suspect]
     Active Substance: DICLOFENAC SODIUM
     Indication: Arthritis
     Dosage: UNK
     Dates: start: 20210518, end: 20210525
  2. VOLTAREN ARTHRITIS PAIN [Suspect]
     Active Substance: DICLOFENAC SODIUM
     Indication: Arthralgia
  3. GABAPENTIN [Suspect]
     Active Substance: GABAPENTIN
     Indication: Supplementation therapy
     Dosage: UNK

REACTIONS (5)
  - Drug ineffective [Not Recovered/Not Resolved]
  - Off label use [Unknown]
  - Treatment noncompliance [Unknown]
  - Inappropriate schedule of product administration [Unknown]
  - Product use in unapproved indication [Unknown]
